FAERS Safety Report 9208903 (Version 1)
Quarter: 2013Q1

REPORT INFORMATION
  Report Type: Spontaneous
  Country: US (occurrence: None)
  Receive Date: 20120817
  Receipt Date: 20120817
  Transmission Date: 20140127
  Serious: Yes (Life-Threatening, Hospitalization, Other)
  Sender: FDA-Public Use
  Company Number: ADR-2012-00123

PATIENT
  Sex: Female

DRUGS (3)
  1. BACLOFEN [Suspect]
     Indication: MUSCLE SPASTICITY
     Dosage: SEE B5
     Route: 037
  2. BACLOFEN [Suspect]
     Indication: MULTIPLE SCLEROSIS
     Dosage: SEE B5
     Route: 037
  3. MORPHINE 20 MG/ML INTRATHECAL [Concomitant]

REACTIONS (4)
  - Oedema [None]
  - Overdose [None]
  - Hypotension [None]
  - Fatigue [None]
